FAERS Safety Report 6998014-0 (Version None)
Quarter: 2010Q3

REPORT INFORMATION
  Report Type: 
  Country: None (occurrence: None)
  Receive Date: 20100920
  Receipt Date: 20071203
  Transmission Date: 20110219
  Serious: Yes (Hospitalization, Other)
  Sender: FDA-Public Use
  Company Number: US-ASTRAZENECA-2007UW19592

PATIENT
  Age: 14977 Day
  Sex: Female
  Weight: 70.3 kg

DRUGS (4)
  1. SEROQUEL [Suspect]
     Indication: DEPRESSION
     Route: 048
     Dates: start: 20021112, end: 20021125
  2. SEROQUEL [Suspect]
     Dosage: 25 MG DISPENSED
     Route: 048
     Dates: start: 20021217
  3. SEROQUEL [Suspect]
     Route: 048
     Dates: start: 20021218, end: 20021231
  4. BUSPAR [Concomitant]
     Route: 048
     Dates: start: 20021217

REACTIONS (3)
  - DIABETES MELLITUS INADEQUATE CONTROL [None]
  - DIABETIC KETOACIDOSIS [None]
  - TYPE 1 DIABETES MELLITUS [None]
